FAERS Safety Report 16730418 (Version 1)
Quarter: 2019Q4

REPORT INFORMATION
  Report Type: Spontaneous
  Country: US (occurrence: US)
  Receive Date: 20190821
  Receipt Date: 20190821
  Transmission Date: 20200122
  Serious: Yes (Hospitalization)
  Sender: FDA-Public Use
  Company Number: None

PATIENT
  Age: 54 Year
  Sex: Female
  Weight: 81.45 kg

DRUGS (1)
  1. FLAGYL [Suspect]
     Active Substance: METRONIDAZOLE\METRONIDAZOLE HYDROCHLORIDE
     Indication: DIVERTICULITIS
     Dosage: ?          QUANTITY:30 TABLET(S);?
     Route: 048

REACTIONS (9)
  - Clostridium difficile infection [None]
  - Arthralgia [None]
  - Dizziness [None]
  - Vertigo [None]
  - Dehydration [None]
  - Visual field defect [None]
  - Vomiting [None]
  - Cataract [None]
  - Fatigue [None]

NARRATIVE: CASE EVENT DATE: 20161204
